FAERS Safety Report 6771707-6 (Version None)
Quarter: 2010Q2

REPORT INFORMATION
  Report Type: 
  Country: None (occurrence: None)
  Receive Date: 20100616
  Receipt Date: 20090923
  Transmission Date: 20101027
  Serious: No
  Sender: FDA-Public Use
  Company Number: US-ASTRAZENECA-2009SE14866

PATIENT
  Sex: Female
  Weight: 59 kg

DRUGS (1)
  1. ATACAND [Suspect]
     Indication: HYPERTENSION
     Route: 048
     Dates: start: 20090916

REACTIONS (2)
  - BLOOD PRESSURE INCREASED [None]
  - POLLAKIURIA [None]
